FAERS Safety Report 4715463-1 (Version None)
Quarter: 2005Q3

REPORT INFORMATION
  Report Type: 
  Country: None (occurrence: None)
  Receive Date: 20050713
  Receipt Date: 20050630
  Transmission Date: 20060218
  Serious: Yes (Death, Life-Threatening, Hospitalization, Other)
  Sender: FDA-Public Use
  Company Number: 2005US000810

PATIENT
  Age: 21 Year
  Sex: Male

DRUGS (2)
  1. PROGRAF [Suspect]
     Indication: PROPHYLAXIS AGAINST TRANSPLANT REJECTION
     Dosage: 1.00 MG, BID, ORAL
     Route: 048
     Dates: start: 20021008
  2. CELLCEPT [Suspect]
     Indication: PROPHYLAXIS AGAINST TRANSPLANT REJECTION
     Dosage: 750.00 MG, BID, ORAL
     Route: 048
     Dates: start: 20030218

REACTIONS (6)
  - ACUTE RESPIRATORY DISTRESS SYNDROME [None]
  - DIALYSIS [None]
  - GASTROINTESTINAL HAEMORRHAGE [None]
  - GENERAL PHYSICAL HEALTH DETERIORATION [None]
  - LUNG INFECTION PSEUDOMONAL [None]
  - RENAL FAILURE ACUTE [None]
